FAERS Safety Report 12789684 (Version 8)
Quarter: 2017Q4

REPORT INFORMATION
  Report Type: Report from Study
  Country: GB (occurrence: GB)
  Receive Date: 20160928
  Receipt Date: 20171006
  Transmission Date: 20180320
  Serious: Yes (Life-Threatening, Hospitalization)
  Sender: FDA-Public Use
  Company Number: GB-JNJFOC-20160923805

PATIENT
  Age: 69 Year
  Sex: Male
  Weight: 88.3 kg

DRUGS (4)
  1. DALTEPARIN [Suspect]
     Active Substance: DALTEPARIN
     Indication: CARDIAC DISORDER
     Route: 058
     Dates: start: 20160908, end: 20160917
  2. AMIODARONE [Suspect]
     Active Substance: AMIODARONE
     Indication: CARDIAC DISORDER
     Route: 065
     Dates: start: 20160908, end: 20160915
  3. RITUXIMAB. [Suspect]
     Active Substance: RITUXIMAB
     Indication: CHRONIC LYMPHOCYTIC LEUKAEMIA
     Route: 042
     Dates: start: 20151116
  4. IBRUTINIB [Suspect]
     Active Substance: IBRUTINIB
     Indication: CHRONIC LYMPHOCYTIC LEUKAEMIA
     Route: 048
     Dates: start: 20151115

REACTIONS (2)
  - Retroperitoneal haemorrhage [Recovered/Resolved]
  - Abdominal compartment syndrome [Recovered/Resolved with Sequelae]

NARRATIVE: CASE EVENT DATE: 20160917
